FAERS Safety Report 8189315-1 (Version None)
Quarter: 2012Q1

REPORT INFORMATION
  Report Type: 
  Country: None (occurrence: None)
  Receive Date: 20120307
  Receipt Date: 20120305
  Transmission Date: 20120608
  Serious: No
  Sender: FDA-Public Use
  Company Number: PHEH2012US005114

PATIENT
  Sex: Male

DRUGS (3)
  1. HYDROCODONE BITARTRATE [Concomitant]
     Dosage: UNK UKN, UNK
  2. ANDROGEL [Concomitant]
     Dosage: UNK UKN, UNK
  3. TASIGNA [Suspect]
     Indication: CHRONIC MYELOID LEUKAEMIA
     Dosage: 400 MG, BID
     Route: 048

REACTIONS (4)
  - SENSATION OF HEAVINESS [None]
  - FATIGUE [None]
  - NEUROPATHY PERIPHERAL [None]
  - PAIN IN EXTREMITY [None]
